FAERS Safety Report 25982271 (Version 2)
Quarter: 2025Q4

REPORT INFORMATION
  Report Type: Spontaneous
  Country: US (occurrence: US)
  Receive Date: 20251031
  Receipt Date: 20251114
  Transmission Date: 20260118
  Serious: No
  Sender: LUPIN
  Company Number: US-LUPIN PHARMACEUTICALS INC.-2025-09704

PATIENT
  Age: 10 Year
  Weight: 54.422 kg

DRUGS (1)
  1. ALBUTEROL SULFATE [Suspect]
     Active Substance: ALBUTEROL SULFATE
     Indication: Asthma
     Dosage: 2 PUFFS 4-5 TIMES A DAY

REACTIONS (3)
  - Wrong technique in product usage process [Unknown]
  - Wrong technique in device usage process [Unknown]
  - No adverse event [Unknown]
